FAERS Safety Report 6245972-8 (Version None)
Quarter: 2009Q2

REPORT INFORMATION
  Report Type: 
  Country: None (occurrence: None)
  Receive Date: 20090626
  Receipt Date: 20080906
  Transmission Date: 20091009
  Serious: No
  Sender: FDA-Public Use
  Company Number: A0747303A

PATIENT
  Sex: Male

DRUGS (2)
  1. IMITREX [Suspect]
     Indication: CLUSTER HEADACHE
     Dosage: 100MG UNKNOWN
     Route: 048
  2. IMITREX [Suspect]
     Route: 058

REACTIONS (1)
  - MEDICATION ERROR [None]
